FAERS Safety Report 7507173-2 (Version None)
Quarter: 2011Q2

REPORT INFORMATION
  Report Type: 
  Country: None (occurrence: None)
  Receive Date: 20110526
  Receipt Date: 20090606
  Transmission Date: 20111010
  Serious: Yes (Other)
  Sender: FDA-Public Use
  Company Number: US-BAYER-200922405NA

PATIENT
  Sex: Male
  Weight: 115 kg

DRUGS (21)
  1. TRASYLOL [Suspect]
     Dosage: 50 ML/HOUR
     Route: 041
     Dates: start: 20060316, end: 20060317
  2. AMIODARONE HCL [Concomitant]
     Dosage: 200 MG, QD
  3. LEVOPHED [Concomitant]
     Dosage: TITRATED
     Route: 042
     Dates: start: 20060317, end: 20060317
  4. PLASMA [Concomitant]
     Dosage: 2000 ML
     Route: 042
     Dates: start: 20060317, end: 20060317
  5. KEFZOL [Concomitant]
     Dosage: 2 GMS
     Route: 042
     Dates: start: 20060317, end: 20060317
  6. TRASYLOL [Suspect]
     Dosage: 200 ML LOADING DOSE
     Route: 042
     Dates: start: 20060316, end: 20060316
  7. DILANTIN [Concomitant]
     Dosage: 1 GM
     Route: 042
     Dates: start: 20060317, end: 20060317
  8. LASIX [Concomitant]
     Dosage: 20 MG
     Route: 042
     Dates: start: 20060317, end: 20060317
  9. PLATELETS [Concomitant]
     Dosage: 24 UNITS
     Route: 042
     Dates: start: 20060317, end: 20060317
  10. HEPARIN [Concomitant]
     Dosage: 20,000 UNITS
     Route: 042
     Dates: start: 20060317, end: 20060317
  11. TRASYLOL [Suspect]
     Indication: AORTIC ANEURYSM REPAIR
     Dosage: 1 ML TEST DOSE
     Route: 042
     Dates: start: 20060316, end: 20060316
  12. VANCOMYCIN [Concomitant]
     Dosage: 1.5 GM
     Route: 042
     Dates: start: 20060317, end: 20060317
  13. DOBUTREX [Concomitant]
     Dosage: TITRATED
     Route: 042
     Dates: start: 20040317, end: 20040317
  14. PROTAMINE SULFATE [Concomitant]
     Dosage: 500 MG
     Route: 042
     Dates: start: 20060317, end: 20060317
  15. CRYOPRECIPITATES [Concomitant]
     Dosage: 10 UNITS
     Route: 042
     Dates: start: 20060317, end: 20060317
  16. RED BLOOD CELLS [Concomitant]
     Dosage: 1250 ML
     Route: 042
     Dates: start: 20060317, end: 20060317
  17. EPINEPHRINE [Concomitant]
     Dosage: TITRATED
     Route: 042
     Dates: start: 20060317, end: 20060317
  18. VASOPRESSIN [Concomitant]
     Dosage: TITRATED
     Route: 042
     Dates: start: 20060317, end: 20060317
  19. LIDOCAINE [Concomitant]
     Dosage: 100 MG
     Route: 042
     Dates: start: 20060317, end: 20060317
  20. COUMADIN [Concomitant]
     Route: 048
  21. TOPROL-XL [Concomitant]
     Dosage: 50 MG, QD

REACTIONS (11)
  - EMOTIONAL DISTRESS [None]
  - RENAL IMPAIRMENT [None]
  - RENAL INJURY [None]
  - STRESS [None]
  - PAIN [None]
  - FEAR [None]
  - INJURY [None]
  - ANHEDONIA [None]
  - ANXIETY [None]
  - RENAL FAILURE [None]
  - UNEVALUABLE EVENT [None]
